FAERS Safety Report 15402212 (Version 1)
Quarter: 2018Q3

REPORT INFORMATION
  Report Type: Spontaneous
  Country: US (occurrence: US)
  Receive Date: 20180916
  Receipt Date: 20180916
  Transmission Date: 20181010
  Serious: Yes (Disabling)
  Sender: FDA-Public Use
  Company Number: None

PATIENT
  Age: 22 Year
  Sex: Female
  Weight: 95.4 kg

DRUGS (8)
  1. METOPROLOL 50 MG [Concomitant]
     Active Substance: METOPROLOL
  2. LATUDA [Concomitant]
     Active Substance: LURASIDONE HYDROCHLORIDE
  3. AMITRYPTILINE 25 MG [Concomitant]
  4. PRO H AIR [Concomitant]
  5. CONCERTA [Suspect]
     Active Substance: METHYLPHENIDATE HYDROCHLORIDE
     Indication: ATTENTION DEFICIT/HYPERACTIVITY DISORDER
     Dosage: ?          QUANTITY:1 TABLET(S);?
     Route: 048
     Dates: start: 20140925, end: 20141201
  6. LOOP RECORDER IMPLANT [Concomitant]
  7. ,LAMOTROGINE 100 MG [Concomitant]
  8. BUPOPRION XL [Concomitant]

REACTIONS (1)
  - Supraventricular tachycardia [None]

NARRATIVE: CASE EVENT DATE: 20141125
